FAERS Safety Report 9118292 (Version 1)
Quarter: 2013Q1

REPORT INFORMATION
  Report Type: Spontaneous
  Country: US (occurrence: None)
  Receive Date: 20130221
  Receipt Date: 20130221
  Transmission Date: 20140127
  Serious: Yes (Hospitalization, Other)
  Sender: FDA-Public Use
  Company Number: None

PATIENT
  Age: 81 Year
  Sex: Female
  Weight: 65.77 kg

DRUGS (1)
  1. LEVAQUIN [Suspect]
     Dosage: 500 MG  1 DAILY  BY MOUTH
     Route: 048
     Dates: start: 20130114, end: 20130116

REACTIONS (5)
  - Musculoskeletal pain [None]
  - Back pain [None]
  - Pain in extremity [None]
  - Asthenia [None]
  - Headache [None]
